FAERS Safety Report 13427787 (Version 4)
Quarter: 2017Q4

REPORT INFORMATION
  Report Type: Report from Study
  Country: ES (occurrence: ES)
  Receive Date: 20170411
  Receipt Date: 20171027
  Transmission Date: 20180320
  Serious: Yes (Other)
  Sender: FDA-Public Use
  Company Number: ES-CELGENEUS-ESP-20170310494

PATIENT
  Age: 56 Year
  Sex: Female
  Weight: 69 kg

DRUGS (6)
  1. CC-4047 [Suspect]
     Active Substance: POMALIDOMIDE
     Dosage: 4 MILLIGRAM
     Route: 048
     Dates: start: 20170123, end: 20170205
  2. DEXAMETHASONE ORAL [Suspect]
     Active Substance: DEXAMETHASONE
     Indication: PLASMA CELL MYELOMA
     Dosage: 20 MILLIGRAM
     Route: 048
     Dates: start: 20151019, end: 20151029
  3. VELCADE [Suspect]
     Active Substance: BORTEZOMIB
     Indication: PLASMA CELL MYELOMA
     Dosage: 1.3 MILLIGRAM/SQ. METER
     Route: 058
     Dates: start: 20151019, end: 20151029
  4. VELCADE [Suspect]
     Active Substance: BORTEZOMIB
     Dosage: 1.3 MICROGRAM/SQ. METER
     Route: 058
     Dates: start: 20170123, end: 20170130
  5. CC-4047 [Suspect]
     Active Substance: POMALIDOMIDE
     Indication: PLASMA CELL MYELOMA
     Dosage: 4 MILLIGRAM
     Route: 048
     Dates: start: 20151019, end: 20170130
  6. DEXAMETHASONE ORAL [Suspect]
     Active Substance: DEXAMETHASONE
     Dosage: 20 MILLIGRAM
     Route: 048
     Dates: start: 20170123, end: 20170130

REACTIONS (1)
  - Myelodysplastic syndrome [Not Recovered/Not Resolved]

NARRATIVE: CASE EVENT DATE: 20170313
